FAERS Safety Report 23486708 (Version 1)
Quarter: 2024Q1

REPORT INFORMATION
  Report Type: Spontaneous
  Country: US (occurrence: None)
  Receive Date: 20240205
  Receipt Date: 20240205
  Transmission Date: 20240410
  Serious: Yes (Disabling)
  Sender: FDA-Public Use
  Company Number: None

PATIENT
  Sex: Female

DRUGS (4)
  1. EVENITY [Suspect]
     Active Substance: ROMOSOZUMAB-AQQG
     Indication: Osteoporosis
     Dates: start: 20231110, end: 20240110
  2. VITAMIN D [Concomitant]
     Active Substance: VITAMIN D NOS
  3. CLONAZEPAM [Concomitant]
     Active Substance: CLONAZEPAM
  4. MELATONIN [Concomitant]
     Active Substance: MELATONIN

REACTIONS (3)
  - Nausea [None]
  - Malaise [None]
  - Insomnia [None]

NARRATIVE: CASE EVENT DATE: 20240202
